FAERS Safety Report 6606852-9 (Version None)
Quarter: 2010Q1

REPORT INFORMATION
  Report Type: 
  Country: None (occurrence: None)
  Receive Date: 20100226
  Receipt Date: 20090216
  Transmission Date: 20100710
  Serious: No
  Sender: FDA-Public Use
  Company Number: US-ALLERGAN-0902062US

PATIENT
  Age: 5 Year
  Sex: Female

DRUGS (6)
  1. BOTOX [Suspect]
     Indication: MUSCLE SPASTICITY
     Dosage: 90 UNITS, SINGLE
     Route: 030
     Dates: start: 20090126, end: 20090126
  2. BOTOX [Suspect]
     Dosage: 120 UNITS, SINGLE
     Route: 030
     Dates: start: 20080501, end: 20080501
  3. BOTOX [Suspect]
     Dosage: 200 UNITS, SINGLE
     Route: 030
     Dates: start: 20071029, end: 20071029
  4. BOTOX [Suspect]
     Dosage: 110 UNITS, UNK
     Route: 030
     Dates: start: 20070423, end: 20070423
  5. BOTOX [Suspect]
     Dosage: 62 UNITS, UNK
     Route: 030
     Dates: start: 20061220, end: 20061220
  6. BOTOX [Suspect]
     Dosage: 63 UNITS, SINGLE
     Route: 030
     Dates: start: 20060830, end: 20060830

REACTIONS (1)
  - PYREXIA [None]
